FAERS Safety Report 14246543 (Version 1)
Quarter: 2017Q4

REPORT INFORMATION
  Report Type: Spontaneous
  Country: US (occurrence: US)
  Receive Date: 20171201
  Receipt Date: 20171201
  Transmission Date: 20180321
  Serious: Yes (Life-Threatening)
  Sender: FDA-Public Use
  Company Number: None

PATIENT
  Age: 27 Year
  Sex: Male

DRUGS (2)
  1. GADOLINIUM [Suspect]
     Active Substance: GADOLINIUM
     Indication: SCAN WITH CONTRAST
     Route: 042
     Dates: start: 20150814, end: 20170103
  2. GADOLINIUM [Suspect]
     Active Substance: GADOLINIUM
     Indication: NUCLEAR MAGNETIC RESONANCE IMAGING
     Route: 042
     Dates: start: 20150814, end: 20170103

REACTIONS (2)
  - Hypersensitivity [None]
  - Anaphylactic reaction [None]

NARRATIVE: CASE EVENT DATE: 20170103
